FAERS Safety Report 9322925 (Version 2)
Quarter: 2013Q3

REPORT INFORMATION
  Report Type: Spontaneous
  Country: US (occurrence: US)
  Receive Date: 20130601
  Receipt Date: 20130910
  Transmission Date: 20140515
  Serious: Yes (Hospitalization)
  Sender: FDA-Public Use
  Company Number: US-ASTRAZENECA-2013SE38620

PATIENT
  Age: 19297 Day
  Sex: Female

DRUGS (30)
  1. NEXIUM [Suspect]
     Route: 048
     Dates: start: 20100611
  2. PRILOSEC [Suspect]
     Route: 048
  3. ROLAIDS [Concomitant]
     Dosage: 3 TIMES PER WEK
  4. LIPITOR [Concomitant]
  5. MACROBID [Concomitant]
  6. PYRIDIUM [Concomitant]
  7. METHYLPREDNISOLONE [Concomitant]
  8. PRAVACHOL [Concomitant]
  9. MORPHINE [Concomitant]
  10. TORADOL [Concomitant]
  11. ECOTRIN [Concomitant]
  12. MOTRIN [Concomitant]
  13. AMBIEN [Concomitant]
  14. KEFLEX [Concomitant]
  15. ULTRAM [Concomitant]
  16. CHANTIX [Concomitant]
  17. LEVAQUIN [Concomitant]
  18. VICODIN [Concomitant]
  19. OXCODONE [Concomitant]
  20. FLEXENE [Concomitant]
  21. ZOCOR [Concomitant]
  22. ATIVAN [Concomitant]
  23. CIPRO [Concomitant]
  24. ACEPHEX [Concomitant]
  25. FOSAMAX [Concomitant]
  26. WELLBUTRIN [Concomitant]
  27. AUGMENTIN [Concomitant]
  28. TEMOVATE [Concomitant]
  29. LIDEX [Concomitant]
  30. VALIUM [Concomitant]

REACTIONS (10)
  - Bladder disorder [Unknown]
  - Osteoporosis [Unknown]
  - Wrist fracture [Unknown]
  - Bone disorder [Unknown]
  - Multiple fractures [Unknown]
  - Foot fracture [Unknown]
  - Osteoarthritis [Unknown]
  - Carpal tunnel syndrome [Unknown]
  - Anxiety [Unknown]
  - Calcium deficiency [Unknown]
